FAERS Safety Report 10749686 (Version 1)
Quarter: 2015Q1

REPORT INFORMATION
  Report Type: Spontaneous
  Country: US (occurrence: US)
  Receive Date: 20150129
  Receipt Date: 20150129
  Transmission Date: 20150721
  Serious: Yes (Other)
  Sender: FDA-Public Use
  Company Number: US-PFIZER INC-2015032265

PATIENT
  Age: 62 Year
  Sex: Female

DRUGS (9)
  1. LIPITOR [Suspect]
     Active Substance: ATORVASTATIN CALCIUM
     Dosage: 40 MG, 1X/DAY (EVERY HS)
     Route: 048
     Dates: start: 20141010
  2. PANTOPRAZOLE [Concomitant]
     Active Substance: PANTOPRAZOLE SODIUM
     Dosage: 40 MG, DAILY
     Route: 048
     Dates: start: 20141010
  3. GABAPENTIN. [Concomitant]
     Active Substance: GABAPENTIN
     Dosage: 300 MG, 3X/DAY
     Route: 048
     Dates: start: 20141028
  4. POTASSIUM AND SODIUM PHOSPHATE [Concomitant]
     Dosage: 280 MG/160 MG/250 MG ONE PACKET TWICE A DAY (8 HOURS APART)
     Dates: start: 20141010
  5. VITAMIN B COMPLEX /00056201/ [Concomitant]
     Dosage: 1 DF, 1X/DAY
     Dates: start: 20141010
  6. ACYCLOVIR. [Concomitant]
     Active Substance: ACYCLOVIR
     Dosage: 200 MG, 2X/DAY
     Route: 048
     Dates: start: 20141010
  7. LACTULOSE. [Concomitant]
     Active Substance: LACTULOSE
     Indication: DIARRHOEA
     Dosage: 20 GRAM/30 ML ORAL SOLUTION, TAKE 30 ML, 3X/DAY
     Route: 048
     Dates: start: 20141010
  8. SODIUM CHLORIDE. [Concomitant]
     Active Substance: SODIUM CHLORIDE
     Dosage: 0.65 %, 2 SPRAYS, 4X/DAY
     Dates: start: 20141010
  9. ONDANSETRON [Concomitant]
     Active Substance: ONDANSETRON
     Dosage: 4 MG, 3X/DAY AS NEEDED
     Route: 048
     Dates: start: 20141010

REACTIONS (2)
  - Chronic kidney disease [Unknown]
  - Plasma cell myeloma [Unknown]

NARRATIVE: CASE EVENT DATE: 20141019
